FAERS Safety Report 4799336-4 (Version None)
Quarter: 2005Q4

REPORT INFORMATION
  Report Type: 
  Country: None (occurrence: None)
  Receive Date: 20051013
  Receipt Date: 20050926
  Transmission Date: 20060501
  Serious: Yes (Other)
  Sender: FDA-Public Use
  Company Number: 216114

PATIENT
  Sex: Female

DRUGS (3)
  1. MABTHERA (RITUXIMAB) CONC FOR SOLUTION FOR INFUSION [Suspect]
     Indication: DRUG USE FOR UNKNOWN INDICATION
     Dates: end: 20050201
  2. VINCRISTINE [Concomitant]
  3. BLEOMYCIN [Concomitant]

REACTIONS (4)
  - DYSAESTHESIA [None]
  - DYSGEUSIA [None]
  - PARESIS [None]
  - TONGUE DISORDER [None]
